FAERS Safety Report 4870118-8 (Version None)
Quarter: 2005Q4

REPORT INFORMATION
  Report Type: 
  Country: None (occurrence: None)
  Receive Date: 20051228
  Receipt Date: 20051215
  Transmission Date: 20060501
  Serious: Yes (Other)
  Sender: FDA-Public Use
  Company Number: USA-2005-0018677

PATIENT
  Age: 68 Year
  Sex: Female

DRUGS (19)
  1. OXYCODONE HCL [Suspect]
  2. MONOPRIL [Concomitant]
  3. VIOXX [Concomitant]
  4. CITALOPRAM (CITALOPRAM) [Concomitant]
  5. CLONAZEPAM [Concomitant]
  6. REMERON [Concomitant]
  7. PROMETHAZINE [Concomitant]
  8. RANITIDINE [Concomitant]
  9. GUAIFENEX (PHENYLPHRINE HYDROCHLORIDE, PHENYLPROPANOLAMINE HYDROCHLORI [Concomitant]
  10. AUGMENTIN (CLAVULANATE POTASSIUM, AMOXICILLIN TRIHYDRATE) [Concomitant]
  11. DIAZEPAM [Concomitant]
  12. MIACALCIN [Concomitant]
  13. FOSAMAX [Concomitant]
  14. FOSINOPRIL SODIUM [Concomitant]
  15. AMITRIPTYLINE (AMITRIPTYLINE) [Concomitant]
  16. ATARAX [Concomitant]
  17. PLAVIX [Concomitant]
  18. DIAZEPAM [Concomitant]
  19. FOSAMAX [Concomitant]

REACTIONS (8)
  - COUGH [None]
  - DEPRESSION [None]
  - EAR PAIN [None]
  - OEDEMA PERIPHERAL [None]
  - PAIN [None]
  - RHINORRHOEA [None]
  - SINUS HEADACHE [None]
  - SUICIDAL IDEATION [None]
